FAERS Safety Report 10064597 (Version 1)
Quarter: 2014Q2

REPORT INFORMATION
  Report Type: Spontaneous
  Country: US (occurrence: None)
  Receive Date: 20140407
  Receipt Date: 20140407
  Transmission Date: 20141212
  Serious: Yes (Other)
  Sender: FDA-Public Use
  Company Number: None

PATIENT
  Age: 60 Year
  Sex: Female
  Weight: 58.51 kg

DRUGS (1)
  1. DOXYCYCLINE HYCLATE [Suspect]
     Indication: PNEUMONIA
     Dosage: 2 PILL A DAY, TWICE DAILY, TAKEN BY MOUTH
     Route: 048
     Dates: start: 20140331, end: 20140405

REACTIONS (4)
  - Nervousness [None]
  - Palpitations [None]
  - Dyspnoea [None]
  - Heart rate increased [None]
